FAERS Safety Report 6607480 (Version 3)
Quarter: 2012Q4

REPORT INFORMATION
  Report Type: 
  Country: US (occurrence: US)
  Receive Date: 20080407
  Receipt Date: 20121121
  Transmission Date: 20130627
  Serious: Yes (Other)
  Sender: FDA-Public Use
  Company Number: US-JNJFOC-20080400709

PATIENT
  Age: 49 Year
  Sex: Male
  Weight: 106.6 kg

DRUGS (6)
  1. MOTRIN [Suspect]
     Indication: PAIN
  2. IBUPROFEN [Suspect]
  3. IBUPROFEN [Suspect]
     Indication: PAIN
  4. ALEVE [Suspect]
     Indication: PAIN
  5. LISINOPRIL [Concomitant]
     Indication: HYPERTENSION
  6. SINGULAIR [Concomitant]

REACTIONS (8)
  - Sleep apnoea syndrome [Unknown]
  - Blood glucose increased [Unknown]
  - Paraesthesia [Unknown]
  - Influenza like illness [Unknown]
  - Pain [Unknown]
  - Drug ineffective [Unknown]
  - Insomnia [None]
  - Blood pressure increased [None]
